FAERS Safety Report 8109426-6 (Version None)
Quarter: 2012Q1

REPORT INFORMATION
  Report Type: 
  Country: None (occurrence: None)
  Receive Date: 20120202
  Receipt Date: 20111015
  Transmission Date: 20120608
  Serious: Yes (Other)
  Sender: FDA-Public Use
  Company Number: ZA-PFIZER INC-2011247624

PATIENT
  Age: 48 Year
  Sex: Male

DRUGS (1)
  1. TEMSIROLIMUS [Suspect]
     Dosage: 25 MG, UNK
     Dates: start: 20110101

REACTIONS (4)
  - PYREXIA [None]
  - TUBERCULOSIS [None]
  - PULMONARY EMBOLISM [None]
  - DYSPNOEA [None]
